FAERS Safety Report 9049453 (Version 1)
Quarter: 2013Q1

REPORT INFORMATION
  Report Type: Spontaneous
  Country: CA (occurrence: CA)
  Receive Date: 20130205
  Receipt Date: 20130205
  Transmission Date: 20140127
  Serious: Yes (Other)
  Sender: FDA-Public Use
  Company Number: CA-GLAXOSMITHKLINE-A1002729A

PATIENT
  Age: 19 None
  Sex: Male
  Weight: 150 kg

DRUGS (1)
  1. FLOVENT [Suspect]
     Indication: ASTHMA
     Route: 065
     Dates: start: 1995, end: 20121116

REACTIONS (3)
  - Adverse event [Unknown]
  - Blood cortisol decreased [Recovered/Resolved]
  - Fatigue [Unknown]
